FAERS Safety Report 11326797 (Version 1)
Quarter: 2015Q3

REPORT INFORMATION
  Report Type: Spontaneous
  Country: US (occurrence: None)
  Receive Date: 20150729
  Receipt Date: 20150729
  Transmission Date: 20151125
  Serious: No
  Sender: FDA-Public Use
  Company Number: None

PATIENT
  Age: 33 Year
  Sex: Female

DRUGS (13)
  1. TOBRAMYCIN. [Suspect]
     Active Substance: TOBRAMYCIN
     Indication: CYSTIC FIBROSIS
     Route: 042
     Dates: start: 20150102, end: 20150114
  2. ORTHO TRI CYCLEN [Concomitant]
     Active Substance: ETHINYL ESTRADIOL\NORGESTIMATE
  3. BUDESONIDE/FORMOTEROL [Concomitant]
     Active Substance: BUDESONIDE\FORMOTEROL
  4. LACTOBACILLUS GRANULES [Concomitant]
  5. PANCREALIPASE [Concomitant]
     Active Substance: PANCRELIPASE
  6. LEVOTHYROXINE. [Concomitant]
     Active Substance: LEVOTHYROXINE
  7. MEROPENEM. [Suspect]
     Active Substance: MEROPENEM
     Route: 042
  8. ALBUTEROL. [Concomitant]
     Active Substance: ALBUTEROL
  9. VITAMIN D [Concomitant]
     Active Substance: CHOLECALCIFEROL
  10. BIOTIN [Concomitant]
     Active Substance: BIOTIN
  11. LORATADINE. [Concomitant]
     Active Substance: LORATADINE
  12. OMEGA 3 FATTY ACIDS [Concomitant]
     Active Substance: OMEGA-3 FATTY ACIDS
  13. VITAMIN B12 [Concomitant]
     Active Substance: CYANOCOBALAMIN

REACTIONS (1)
  - Pruritus [None]

NARRATIVE: CASE EVENT DATE: 20150114
